FAERS Safety Report 17300301 (Version 1)
Quarter: 2020Q1

REPORT INFORMATION
  Report Type: Spontaneous
  Country: US (occurrence: US)
  Receive Date: 20200121
  Receipt Date: 20200121
  Transmission Date: 20200409
  Serious: Yes (Other)
  Sender: FDA-Public Use
  Company Number: None

PATIENT
  Sex: Male

DRUGS (1)
  1. DICLOFENAC 50MG [Suspect]
     Active Substance: DICLOFENAC

REACTIONS (1)
  - Abdominal discomfort [None]
